FAERS Safety Report 6179131-4 (Version None)
Quarter: 2009Q2

REPORT INFORMATION
  Report Type: 
  Country: None (occurrence: None)
  Receive Date: 20090430
  Receipt Date: 20090424
  Transmission Date: 20091009
  Serious: Yes (Hospitalization)
  Sender: FDA-Public Use
  Company Number: 2009SP008786

PATIENT
  Age: 71 Year
  Sex: Male
  Weight: 72.7 kg

DRUGS (1)
  1. TEMODAR [Suspect]
     Indication: NON-SMALL CELL LUNG CANCER
     Dosage: 75 MG/M2; QD; PO
     Route: 048
     Dates: start: 20080324, end: 20080414

REACTIONS (6)
  - CONSTIPATION [None]
  - DIVERTICULUM [None]
  - PAIN [None]
  - PROCTITIS [None]
  - RECTAL HAEMORRHAGE [None]
  - RECTAL TENESMUS [None]
